FAERS Safety Report 7908463-1 (Version None)
Quarter: 2011Q4

REPORT INFORMATION
  Report Type: 
  Country: None (occurrence: None)
  Receive Date: 20111111
  Receipt Date: 20111104
  Transmission Date: 20120403
  Serious: Yes (Death, Life-Threatening, Hospitalization)
  Sender: FDA-Public Use
  Company Number: DE-JNJFOC-20110208318

PATIENT
  Age: 89 Year
  Sex: Male

DRUGS (6)
  1. OMEPRAZOLE [Concomitant]
     Route: 048
  2. ENALAPRIL MALEATE [Concomitant]
     Route: 048
  3. FUROSEMIDE [Concomitant]
     Route: 048
  4. RISPERDAL [Suspect]
     Indication: PRODUCT USED FOR UNKNOWN INDICATION
     Route: 048
     Dates: start: 20100616, end: 20100809
  5. CITALOPRAM HYDROBROMIDE [Concomitant]
     Route: 048
     Dates: start: 20100810
  6. ASPIRIN [Concomitant]
     Route: 048

REACTIONS (2)
  - PNEUMONIA [None]
  - DELUSION [None]
